FAERS Safety Report 6966431-0 (Version None)
Quarter: 2010Q3

REPORT INFORMATION
  Report Type: 
  Country: None (occurrence: None)
  Receive Date: 20100906
  Receipt Date: 20100826
  Transmission Date: 20110219
  Serious: Yes (Hospitalization)
  Sender: FDA-Public Use
  Company Number: US-BRISTOL-MYERS SQUIBB COMPANY-15024748

PATIENT
  Age: 65 Year
  Sex: Female

DRUGS (5)
  1. CARBIDOPA + LEVODOPA [Suspect]
     Indication: PARKINSON'S DISEASE
     Route: 048
  2. TRIHEXYPHENIDYL HCL [Suspect]
     Indication: PARKINSON'S DISEASE
     Route: 065
  3. RASAGILINE MESYLATE [Suspect]
     Indication: PARKINSON'S DISEASE
     Route: 065
  4. PRAMIPEXOLE DIHYDROCHLORIDE [Suspect]
     Indication: PARKINSON'S DISEASE
  5. LISINOPRIL [Concomitant]
     Indication: HYPERTENSION

REACTIONS (2)
  - ACUTE MYOCARDIAL INFARCTION [None]
  - CORONARY ARTERY DISSECTION [None]
